FAERS Safety Report 5363806-0 (Version None)
Quarter: 2007Q2

REPORT INFORMATION
  Report Type: 
  Country: None (occurrence: None)
  Receive Date: 20070620
  Receipt Date: 20070608
  Transmission Date: 20071010
  Serious: Yes (Hospitalization, Disabling)
  Sender: FDA-Public Use
  Company Number: US-MERCK-0302USA02227

PATIENT
  Age: 54 Year
  Sex: Male
  Weight: 93 kg

DRUGS (19)
  1. ZOCOR [Suspect]
     Indication: BLOOD CHOLESTEROL INCREASED
     Route: 048
     Dates: start: 19990924, end: 20000530
  2. ZOCOR [Suspect]
     Route: 048
     Dates: start: 20000713, end: 20010901
  3. VASOTEC [Concomitant]
     Route: 048
     Dates: start: 19990924
  4. CATAPRES [Concomitant]
     Route: 065
     Dates: start: 19990924
  5. LOPRESSOR [Concomitant]
     Route: 065
     Dates: start: 19990924
  6. XANAX [Concomitant]
     Route: 065
     Dates: start: 19990924
  7. VICODIN [Concomitant]
     Route: 065
     Dates: start: 19990924
  8. ASPIRIN [Concomitant]
     Route: 065
     Dates: start: 20000118
  9. LORTAB [Concomitant]
     Route: 065
     Dates: start: 20000118
  10. TRICOR [Concomitant]
     Route: 065
     Dates: start: 20000601
  11. PRAVACHOL [Concomitant]
     Route: 065
     Dates: start: 19980901, end: 19990901
  12. INFLUENZA VIRUS VACCINE (UNSPECIFIED) [Concomitant]
     Route: 030
     Dates: start: 19991014, end: 19991014
  13. PNEUMOCOCCAL VACCINE (UNSPECIFIED) [Concomitant]
     Route: 030
     Dates: start: 19991014, end: 19991014
  14. LASIX [Concomitant]
     Route: 065
  15. SLOW-K [Concomitant]
     Route: 065
  16. MESTINON [Concomitant]
     Route: 065
  17. NORTRIPTYLINE [Concomitant]
     Route: 065
  18. LOPID [Concomitant]
     Route: 065
  19. VERAPAMIL [Concomitant]
     Route: 065

REACTIONS (34)
  - ACUTE CORONARY SYNDROME [None]
  - AMYOTROPHIC LATERAL SCLEROSIS [None]
  - ANGINA UNSTABLE [None]
  - ANTINUCLEAR ANTIBODY POSITIVE [None]
  - ANXIETY [None]
  - APPLICATION SITE VESICLES [None]
  - ARTHRALGIA [None]
  - BACK PAIN [None]
  - BENIGN PROSTATIC HYPERPLASIA [None]
  - BLOOD CREATINE PHOSPHOKINASE INCREASED [None]
  - BURSITIS [None]
  - CARPAL TUNNEL SYNDROME [None]
  - CONCUSSION [None]
  - DEMYELINATION [None]
  - DERMATITIS CONTACT [None]
  - ERECTILE DYSFUNCTION [None]
  - FALL [None]
  - HUMERUS FRACTURE [None]
  - HYPERREFLEXIA [None]
  - INTERVERTEBRAL DISC PROTRUSION [None]
  - JOINT CREPITATION [None]
  - JOINT SPRAIN [None]
  - JOINT SWELLING [None]
  - MULTIPLE INJURIES [None]
  - MUSCLE ATROPHY [None]
  - MYOPATHY [None]
  - NERVE ROOT COMPRESSION [None]
  - NERVOUS SYSTEM DISORDER [None]
  - NEUROPATHY [None]
  - PAIN [None]
  - PALPITATIONS [None]
  - PENIS DISORDER [None]
  - SKIN LACERATION [None]
  - SPINAL OSTEOARTHRITIS [None]
